FAERS Safety Report 4613664-4 (Version None)
Quarter: 2005Q1

REPORT INFORMATION
  Report Type: 
  Country: None (occurrence: None)
  Receive Date: 20050321
  Receipt Date: 20030523
  Transmission Date: 20050727
  Serious: Yes (Hospitalization, Other)
  Sender: FDA-Public Use
  Company Number: US-AMGEN-US038385

PATIENT
  Sex: Female
  Weight: 64 kg

DRUGS (13)
  1. EPOGEN [Suspect]
     Indication: RENAL FAILURE CHRONIC
     Route: 058
     Dates: start: 20020820, end: 20030720
  2. DILANTIN [Concomitant]
     Dates: start: 20030201, end: 20030522
  3. NORVASC [Concomitant]
  4. METOPROLOL TARTRATE [Concomitant]
  5. LASIX [Concomitant]
  6. PROCARDIA [Concomitant]
  7. FERROUS SULFATE TAB [Concomitant]
  8. NPH INSULIN [Concomitant]
  9. AVANDIA [Concomitant]
     Dates: start: 20030501
  10. PROGRAF [Concomitant]
     Dates: start: 20050218
  11. CELLCEPT [Concomitant]
     Dates: start: 20050218
  12. PREDNISONE [Concomitant]
     Dates: start: 20050218
  13. ISONIAZID [Concomitant]
     Dates: start: 20030701

REACTIONS (8)
  - ANTI-ERYTHROPOIETIN ANTIBODY POSITIVE [None]
  - APLASIA PURE RED CELL [None]
  - BLOOD IRON ABNORMAL [None]
  - CONFUSIONAL STATE [None]
  - MENINGIOMA [None]
  - RENAL TRANSPLANT [None]
  - STAPHYLOCOCCAL BACTERAEMIA [None]
  - THERAPEUTIC RESPONSE DECREASED [None]
